FAERS Safety Report 5469749-6 (Version None)
Quarter: 2007Q3

REPORT INFORMATION
  Report Type: 
  Country: None (occurrence: None)
  Receive Date: 20070927
  Receipt Date: 20070920
  Transmission Date: 20080115
  Serious: Yes (Other)
  Sender: FDA-Public Use
  Company Number: NL-ASTRAZENECA-2007AC01787

PATIENT
  Age: 23432 Day
  Sex: Male

DRUGS (4)
  1. CRESTOR [Suspect]
     Indication: ILL-DEFINED DISORDER
     Route: 048
     Dates: start: 20070914
  2. SANDOSTATIN LAR [Suspect]
     Route: 042
     Dates: start: 20070917
  3. PLAVIX [Concomitant]
     Dates: start: 20070914
  4. AVODART [Concomitant]
     Dates: start: 20070914

REACTIONS (1)
  - LOSS OF CONSCIOUSNESS [None]
